FAERS Safety Report 17927861 (Version 1)
Quarter: 2020Q2

REPORT INFORMATION
  Report Type: Report from Study
  Country: None (occurrence: US)
  Receive Date: 20200623
  Receipt Date: 20200623
  Transmission Date: 20200714
  Serious: No
  Sender: FDA-Public Use
  Company Number: US-BIOVITRUM-2019US1454

PATIENT
  Age: 51 Year
  Sex: Female

DRUGS (7)
  1. TRAZODONE [Concomitant]
     Active Substance: TRAZODONE HYDROCHLORIDE
  2. COQ10 [Concomitant]
     Active Substance: UBIDECARENONE
  3. LEVOTHYROXINE. [Concomitant]
     Active Substance: LEVOTHYROXINE
  4. OXYCODONE [Concomitant]
     Active Substance: OXYCODONE
  5. PREDNISONE. [Concomitant]
     Active Substance: PREDNISONE
  6. KINERET [Suspect]
     Active Substance: ANAKINRA
     Route: 058
     Dates: start: 20190611
  7. LIOTHYRONINE [Concomitant]
     Active Substance: LIOTHYRONINE

REACTIONS (8)
  - Diarrhoea [Unknown]
  - Oropharyngeal pain [Unknown]
  - Pyrexia [Unknown]
  - Abdominal discomfort [Unknown]
  - Therapeutic response shortened [Unknown]
  - Headache [Unknown]
  - Contusion [Unknown]
  - Malaise [Unknown]

NARRATIVE: CASE EVENT DATE: 20190611
